FAERS Safety Report 16907750 (Version 2)
Quarter: 2020Q1

REPORT INFORMATION
  Report Type: Report from Study
  Country: FR (occurrence: FR)
  Receive Date: 20191011
  Receipt Date: 20200120
  Transmission Date: 20200409
  Serious: Yes (Other)
  Sender: FDA-Public Use
  Company Number: FR-ROCHE-2430850

PATIENT
  Age: 9 Month
  Sex: Male

DRUGS (1)
  1. VEMURAFENIB. [Suspect]
     Active Substance: VEMURAFENIB
     Indication: LANGERHANS^ CELL HISTIOCYTOSIS
     Route: 048

REACTIONS (5)
  - Panniculitis [Unknown]
  - Nail disorder [Unknown]
  - Rash [Unknown]
  - Off label use [Unknown]
  - Intentional product use issue [Unknown]
